FAERS Safety Report 9454532 (Version 2)
Quarter: 2013Q4

REPORT INFORMATION
  Report Type: Spontaneous
  Country: FR (occurrence: FR)
  Receive Date: 20130812
  Receipt Date: 20131017
  Transmission Date: 20140711
  Serious: Yes (Other)
  Sender: FDA-Public Use
  Company Number: FR-VIIV HEALTHCARE LIMITED-B0913321A

PATIENT
  Age: 47 Year
  Sex: Male

DRUGS (4)
  1. KIVEXA [Suspect]
     Indication: HIV INFECTION
     Route: 048
     Dates: start: 20130316, end: 20130422
  2. NORVIR [Suspect]
     Indication: HIV INFECTION
     Dosage: 100MG PER DAY
     Route: 048
     Dates: start: 20090429
  3. REYATAZ [Suspect]
     Indication: HIV INFECTION
     Dosage: 300MG PER DAY
     Route: 048
     Dates: start: 20090429
  4. TRUVADA [Concomitant]
     Indication: HIV INFECTION
     Route: 048
     Dates: end: 201303

REACTIONS (3)
  - Insomnia [Unknown]
  - Irritability [Unknown]
  - Gastrointestinal disorder [Unknown]
